FAERS Safety Report 12945755 (Version 2)
Quarter: 2016Q4

REPORT INFORMATION
  Report Type: Report from Study
  Country: None (occurrence: US)
  Receive Date: 20161115
  Receipt Date: 20161222
  Transmission Date: 20170207
  Serious: Yes (Hospitalization, Other)
  Sender: FDA-Public Use
  Company Number: US-CONCORDIA LABORATORIES INC.-PIN-2015-00023

PATIENT
  Sex: Male

DRUGS (1)
  1. PHOTOFRIN [Suspect]
     Active Substance: PORFIMER SODIUM
     Indication: PLEURAL MESOTHELIOMA MALIGNANT
     Route: 042

REACTIONS (28)
  - Pulmonary air leakage [Not Recovered/Not Resolved]
  - Decubitus ulcer [Not Recovered/Not Resolved]
  - Pneumonia [Not Recovered/Not Resolved]
  - Pneumonia [Recovered/Resolved]
  - Empyema [Not Recovered/Not Resolved]
  - Respiratory failure [Recovered/Resolved]
  - Pneumonia [Recovered/Resolved]
  - Pneumonia [Not Recovered/Not Resolved]
  - Respiratory distress [Not Recovered/Not Resolved]
  - Sepsis [Recovered/Resolved]
  - Malnutrition [Not Recovered/Not Resolved]
  - Pyrexia [Unknown]
  - Pleural effusion [Recovered/Resolved]
  - Pulmonary air leakage [Recovered/Resolved]
  - Sepsis [Recovered/Resolved]
  - Oedema peripheral [Recovered/Resolved]
  - Localised oedema [Not Recovered/Not Resolved]
  - Malnutrition [Not Recovered/Not Resolved]
  - Acute kidney injury [Recovered/Resolved]
  - Pneumothorax [Not Recovered/Not Resolved]
  - Atrial fibrillation [Recovered/Resolved]
  - Respiratory failure [Recovered/Resolved]
  - Atrial fibrillation [Recovered/Resolved]
  - Sepsis [Fatal]
  - Hypotension [Unknown]
  - Empyema [Not Recovered/Not Resolved]
  - Hypotension [Recovered/Resolved]
  - Oedema [Recovered/Resolved]

NARRATIVE: CASE EVENT DATE: 20141104
